FAERS Safety Report 10470416 (Version 1)
Quarter: 2014Q3

REPORT INFORMATION
  Report Type: Spontaneous
  Country: US (occurrence: US)
  Receive Date: 20140923
  Receipt Date: 20140923
  Transmission Date: 20150326
  Serious: Yes (Hospitalization)
  Sender: FDA-Public Use
  Company Number: US-MYLANLABS-2014M1004998

PATIENT

DRUGS (1)
  1. CLINDAMYCIN [Suspect]
     Active Substance: CLINDAMYCIN\CLINDAMYCIN PHOSPHATE
     Dosage: 10 DAY COURSE
     Route: 065

REACTIONS (4)
  - Gas gangrene [Recovering/Resolving]
  - Clostridium difficile colitis [Recovering/Resolving]
  - Septic shock [Recovering/Resolving]
  - Syncope [Unknown]
